FAERS Safety Report 20343275 (Version 2)
Quarter: 2022Q2

REPORT INFORMATION
  Report Type: Spontaneous
  Country: GB (occurrence: GB)
  Receive Date: 20220117
  Receipt Date: 20220413
  Transmission Date: 20220721
  Serious: Yes (Death)
  Sender: FDA-Public Use
  Company Number: None

PATIENT
  Age: 62 Year
  Sex: Male

DRUGS (16)
  1. CYCLOPHOSPHAMIDE [Suspect]
     Active Substance: CYCLOPHOSPHAMIDE
     Indication: Interstitial lung disease
     Route: 042
     Dates: start: 20210917
  2. NOVORAPID [Concomitant]
     Active Substance: INSULIN ASPART
     Indication: Product used for unknown indication
     Dosage: IMMEDIATELY BEFORE MEALS OR WHEN NECESSARY SHORTLY AFTER MEALS
     Route: 058
  3. LANTUS [Concomitant]
     Active Substance: INSULIN GLARGINE
     Indication: Product used for unknown indication
     Dosage: 2 X 5 PRE-FILLED DISPOSABLE INJECTION - 50UNITS ON
     Route: 065
  4. COTRIMOXAZOLE [Concomitant]
     Active Substance: SULFAMETHOXAZOLE\TRIMETHOPRIM
     Indication: Product used for unknown indication
     Dosage: 960MG MWF
     Route: 065
  5. IRBESARTAN [Concomitant]
     Active Substance: IRBESARTAN
     Indication: Product used for unknown indication
     Dosage: 300MG TABLETS ONE TO BE TAKEN DAILY- 28 TABLET
     Route: 065
  6. RAMIPRIL [Concomitant]
     Active Substance: RAMIPRIL
     Indication: Product used for unknown indication
     Dosage: 10MG CAPSULES ONE TO BE TAKEN DAILY 28 CAPSULE
     Route: 065
  7. EZETIMIBE [Concomitant]
     Active Substance: EZETIMIBE
     Indication: Product used for unknown indication
     Dosage: 10MG TABLETS ONE TO BE TAKEN EACH DAY
     Route: 065
  8. LEVOTHYROXINE SODIUM [Concomitant]
     Active Substance: LEVOTHYROXINE SODIUM
     Indication: Product used for unknown indication
     Dosage: 50MICROGRAM TABLETS ONE TO BE TAKEN EACH MORNING AT LEAST 30 MINUTES BEFORE BREAKFAST
     Route: 065
  9. CITALOPRAM [Concomitant]
     Active Substance: CITALOPRAM HYDROBROMIDE
     Indication: Product used for unknown indication
     Dosage: 10MG TABLETS ONE TO BE TAKEN EACH DAY IN ADDITION TO 20MG TABLET
     Route: 065
  10. OXYGEN [Concomitant]
     Active Substance: OXYGEN
     Indication: Product used for unknown indication
     Route: 065
  11. PREDNISOLONE [Concomitant]
     Active Substance: PREDNISOLONE
     Dosage: 5MG TABLETS - TWO EACH DAY AS ADVISED BY RESPIRATORY CLINIC - 15MG/20MG ALTERNATE DAYS
     Route: 065
  12. LANSOPRAZOLE [Concomitant]
     Active Substance: LANSOPRAZOLE
     Indication: Product used for unknown indication
     Dosage: 15MG GASTRO-RESISTANT CAPSULES ONE TO BE TAKEN EACH MORNING - TAKING 2 OM
     Route: 065
  13. ALBUTEROL [Concomitant]
     Active Substance: ALBUTEROL
     Indication: Product used for unknown indication
     Dosage: 100MICROGRAMS/DOSE INHALER CFC FREE ONE OR TWO PUFFS TO BE INHALED UP TO FOUR TIMES A DAY
     Route: 065
  14. METOCLOPRAMIDE [Concomitant]
     Active Substance: METOCLOPRAMIDE
     Indication: Product used for unknown indication
     Dosage: 10MG TDS PRN
     Route: 065
  15. ACETYLCYSTEINE [Concomitant]
     Active Substance: ACETYLCYSTEINE
     Indication: Product used for unknown indication
     Dosage: 600MG OM
     Route: 065
  16. FLUCONAZOLE [Concomitant]
     Active Substance: FLUCONAZOLE
     Indication: Product used for unknown indication
     Dosage: 50MG OM
     Route: 065

REACTIONS (4)
  - Infection [Fatal]
  - Dyspnoea [Unknown]
  - Cough [Unknown]
  - Hypoxia [Unknown]

NARRATIVE: CASE EVENT DATE: 20210917
